FAERS Safety Report 7815507-4 (Version None)
Quarter: 2011Q4

REPORT INFORMATION
  Report Type: 
  Country: None (occurrence: None)
  Receive Date: 20111014
  Receipt Date: 20110930
  Transmission Date: 20120403
  Serious: Yes (Death)
  Sender: FDA-Public Use
  Company Number: FR-ROCHE-1001607

PATIENT
  Sex: Male

DRUGS (2)
  1. HERCEPTIN [Suspect]
     Indication: ACUTE LYMPHOCYTIC LEUKAEMIA
     Dosage: LAST DOSE RECEIVED PRIOR TO SAE: 04 MARCH 2011
     Route: 042
     Dates: start: 20110225, end: 20110225
  2. HERCEPTIN [Suspect]
     Route: 042
     Dates: start: 20110304, end: 20110304

REACTIONS (1)
  - RESPIRATORY DISTRESS [None]
